FAERS Safety Report 5887810-9 (Version None)
Quarter: 2008Q3

REPORT INFORMATION
  Report Type: 
  Country: None (occurrence: None)
  Receive Date: 20080917
  Receipt Date: 20080917
  Transmission Date: 20090109
  Serious: Yes (Life-Threatening)
  Sender: FDA-Public Use
  Company Number: None

PATIENT
  Sex: Female
  Weight: 82 kg

DRUGS (3)
  1. FLUDARABINE PHOSPHATE [Suspect]
     Indication: CHRONIC MYELOID LEUKAEMIA
     Dosage: 55 MG DAILY IV DRIP
     Route: 041
     Dates: start: 20080709, end: 20080713
  2. BUSULFAN [Suspect]
     Dosage: 476 MG
     Dates: start: 20080710, end: 20080713
  3. CAMPATH [Concomitant]

REACTIONS (9)
  - ACIDOSIS [None]
  - BLOOD CULTURE POSITIVE [None]
  - DIALYSIS [None]
  - HYPERGLYCAEMIA [None]
  - KLEBSIELLA INFECTION [None]
  - LEGIONELLA INFECTION [None]
  - LUNG INFILTRATION [None]
  - OXYGEN SATURATION DECREASED [None]
  - PYREXIA [None]
